FAERS Safety Report 15980459 (Version 5)
Quarter: 2019Q2

REPORT INFORMATION
  Report Type: Report from Study
  Country: JP (occurrence: JP)
  Receive Date: 20190219
  Receipt Date: 20190529
  Transmission Date: 20190711
  Serious: Yes (Death, Hospitalization, Disabling)
  Sender: FDA-Public Use
  Company Number: JP-BEH-2019099627

PATIENT
  Age: 72 Year
  Sex: Female
  Weight: 43.4 kg

DRUGS (15)
  1. KAYTWO N [Concomitant]
     Active Substance: MENATETRENONE
     Indication: PROCOAGULANT THERAPY
     Dosage: 10 MG, UNK
     Route: 065
     Dates: start: 20180622, end: 20180624
  2. SPIRONOLACTONE. [Concomitant]
     Active Substance: SPIRONOLACTONE
     Dosage: UNK
     Route: 048
     Dates: end: 20180629
  3. NICARDIPINE [Concomitant]
     Active Substance: NICARDIPINE
     Indication: BLOOD PRESSURE MANAGEMENT
     Dosage: UNK
     Route: 065
     Dates: start: 20180622, end: 20180625
  4. MIYA-BM [Concomitant]
     Active Substance: CLOSTRIDIUM BUTYRICUM SPORES STRAIN M-55
     Indication: DIARRHOEA
     Dosage: UNK
     Route: 048
     Dates: start: 20180627, end: 20180629
  5. DOBUTAMINE [Concomitant]
     Active Substance: DOBUTAMINE\DOBUTAMINE HYDROCHLORIDE
     Indication: BLOOD PRESSURE DECREASED
     Dosage: UNK
     Route: 065
     Dates: start: 20180629, end: 20180630
  6. WARFARIN [Concomitant]
     Active Substance: WARFARIN
     Indication: ATRIAL THROMBOSIS
  7. FUROSEMIDE. [Concomitant]
     Active Substance: FUROSEMIDE
     Dosage: UNK
     Route: 048
     Dates: end: 20180629
  8. KAYTWO N [Concomitant]
     Active Substance: MENATETRENONE
     Dosage: 20 MG, UNK
     Route: 065
     Dates: start: 20180623, end: 20180623
  9. BISOPROLOL [Concomitant]
     Active Substance: BISOPROLOL
     Dosage: UNK
     Route: 048
     Dates: end: 20180629
  10. AMIODARONE [Concomitant]
     Active Substance: AMIODARONE
     Dosage: UNK
     Route: 048
     Dates: end: 20180629
  11. BERIPLEX P/N [Suspect]
     Active Substance: COAGULATION FACTOR IX HUMAN\COAGULATION FACTOR VII HUMAN\COAGULATION FACTOR X HUMAN\PROTEIN C\PROTEIN S HUMAN\PROTHROMBIN
     Indication: HAEMORRHAGE
     Dosage: 500 IU, UNK
     Route: 042
     Dates: start: 20180624
  12. COAHIBITOR [Concomitant]
     Active Substance: NAFAMOSTAT MESYLATE
     Indication: DISSEMINATED INTRAVASCULAR COAGULATION
     Dosage: UNK
     Route: 048
     Dates: start: 20180627, end: 20180629
  13. DOPAMINE HYDROCHLORIDE. [Concomitant]
     Active Substance: DOPAMINE HYDROCHLORIDE
     Indication: BLOOD PRESSURE DECREASED
     Dosage: UNK
     Route: 065
     Dates: start: 20180629, end: 20180630
  14. WARFARIN [Concomitant]
     Active Substance: WARFARIN
     Indication: CARDIAC VALVE PROSTHESIS USER
     Dosage: 1 MG, UNK
     Route: 048
     Dates: end: 20180621
  15. ROSUVASTATIN. [Concomitant]
     Active Substance: ROSUVASTATIN
     Dosage: UNK
     Route: 048
     Dates: end: 20180629

REACTIONS (6)
  - Cardiac failure acute [Fatal]
  - Blood pressure decreased [Fatal]
  - Cerebral haemorrhage [Not Recovered/Not Resolved]
  - Renal impairment [Not Recovered/Not Resolved]
  - Pneumonia aspiration [Not Recovered/Not Resolved]
  - Respiratory failure [Fatal]

NARRATIVE: CASE EVENT DATE: 20180625
